FAERS Safety Report 12488964 (Version 1)
Quarter: 2016Q2

REPORT INFORMATION
  Report Type: Spontaneous
  Country: CH (occurrence: CH)
  Receive Date: 20160622
  Receipt Date: 20160622
  Transmission Date: 20160815
  Serious: Yes (Other)
  Sender: FDA-Public Use
  Company Number: CH-BAYER-2016-115415

PATIENT
  Age: 77 Year
  Sex: Female
  Weight: 56 kg

DRUGS (18)
  1. MARCUMAR [Concomitant]
     Active Substance: PHENPROCOUMON
  2. TORASEMIDE [Concomitant]
     Active Substance: TORSEMIDE
     Dosage: 10 MG, QD
  3. PLAVIX [Suspect]
     Active Substance: CLOPIDOGREL BISULFATE
     Dosage: 75 MG, QD. NO LOADING DOSE ADMINISTERED.
     Route: 048
     Dates: start: 20160510
  4. DISTRANEURIN [Concomitant]
     Active Substance: CLOMETHIAZOLE
     Dosage: 300 MG, QD
  5. SYMBICORT [Concomitant]
     Active Substance: BUDESONIDE\FORMOTEROL FUMARATE DIHYDRATE
  6. CLARITHROMYCIN. [Concomitant]
     Active Substance: CLARITHROMYCIN
  7. DILTIAZEM [Concomitant]
     Active Substance: DILTIAZEM
  8. DAFALGAN [Concomitant]
     Active Substance: ACETAMINOPHEN
     Dosage: 1 G, TID
  9. SPIRIVA [Concomitant]
     Active Substance: TIOTROPIUM BROMIDE MONOHYDRATE
  10. CEFTRIAXONE. [Concomitant]
     Active Substance: CEFTRIAXONE
  11. ATORVASTATIN [Concomitant]
     Active Substance: ATORVASTATIN
     Dosage: 10 MG, QD
  12. JANUVIA [Concomitant]
     Active Substance: SITAGLIPTIN PHOSPHATE
     Dosage: 50 MG, QD
  13. PANTOZOL [Concomitant]
     Active Substance: PANTOPRAZOLE SODIUM
     Dosage: 20 MG, UNK
  14. SINGULAIR [Concomitant]
     Active Substance: MONTELUKAST SODIUM
  15. ASPIRIN CARDIO [Suspect]
     Active Substance: ASPIRIN
     Dosage: 100 MG, QD
     Route: 048
     Dates: start: 20160510
  16. APIXABAN [Suspect]
     Active Substance: APIXABAN
     Dosage: 2.5 UNK, UNK
     Route: 048
     Dates: start: 20160528
  17. BELOC-ZOK [Concomitant]
     Active Substance: METOPROLOL SUCCINATE
     Dosage: 100 MG, QD
  18. APIXABAN [Suspect]
     Active Substance: APIXABAN
     Dosage: 5 MG, BID.
     Route: 048
     Dates: start: 20160511, end: 20160517

REACTIONS (2)
  - Haematoma [Recovered/Resolved]
  - Prescribed overdose [Recovered/Resolved]

NARRATIVE: CASE EVENT DATE: 20160511
